FAERS Safety Report 17443282 (Version 2)
Quarter: 2020Q1

REPORT INFORMATION
  Report Type: Report from Study
  Country: JP (occurrence: JP)
  Receive Date: 20200221
  Receipt Date: 20200225
  Transmission Date: 20200409
  Serious: Yes (Death, Life-Threatening, Other)
  Sender: FDA-Public Use
  Company Number: JP-AMGEN-JPNCT2020028032

PATIENT
  Age: 92 Year
  Sex: Male

DRUGS (11)
  1. RENAGEL [Concomitant]
     Active Substance: SEVELAMER HYDROCHLORIDE
     Indication: HYPERPHOSPHATAEMIA
     Dosage: 1500 MILLIGRAM
     Route: 048
     Dates: start: 20170529
  2. DARBEPOETIN ALFA [Suspect]
     Active Substance: DARBEPOETIN ALFA
     Dosage: 240 MICROGRAM, QWK
     Route: 065
     Dates: start: 20180907, end: 20181012
  3. DARBEPOETIN ALFA [Suspect]
     Active Substance: DARBEPOETIN ALFA
     Dosage: 240 MICROGRAM, QWK
     Route: 065
     Dates: start: 20181014, end: 20190313
  4. LYRICA [Concomitant]
     Active Substance: PREGABALIN
     Indication: SPINAL STENOSIS
     Dosage: 25 MG, 3X/WEEK
     Route: 048
     Dates: start: 20180108
  5. NEXIUM [Concomitant]
     Active Substance: ESOMEPRAZOLE MAGNESIUM
     Indication: GASTROOESOPHAGEAL REFLUX DISEASE
     Dosage: 20 MILLIGRAM
     Route: 048
     Dates: start: 20150401
  6. PRIMOBOLAN [Concomitant]
     Active Substance: METHENOLONE
     Indication: MYELODYSPLASTIC SYNDROME
     Dosage: 20 MILLIGRAM
     Route: 048
     Dates: start: 20170613
  7. EDIROL [Concomitant]
     Active Substance: ELDECALCITOL
     Indication: OSTEOPOROSIS
     Dosage: 0.5 UG, QOD
     Route: 048
     Dates: start: 20150916
  8. DARBEPOETIN ALFA [Suspect]
     Active Substance: DARBEPOETIN ALFA
     Indication: MYELODYSPLASTIC SYNDROME
     Dosage: 240 MICROGRAM, QWK
     Route: 065
     Dates: start: 20190403
  9. THYRADIN S [Concomitant]
     Active Substance: LEVOTHYROXINE SODIUM
     Indication: HYPOTHYROIDISM
     Dosage: 100 MICROGRAM
     Route: 048
     Dates: start: 20170502
  10. FOLIAMIN [Concomitant]
     Active Substance: FOLIC ACID
     Indication: MYELODYSPLASTIC SYNDROME
     Dosage: 20 MG
     Route: 048
     Dates: start: 20170502
  11. ALFAROL [Concomitant]
     Active Substance: ALFACALCIDOL
     Indication: HYPERPARATHYROIDISM SECONDARY
     Dosage: 0.25 UG
     Route: 048
     Dates: start: 20150401

REACTIONS (4)
  - Sinus node dysfunction [Recovering/Resolving]
  - Gastrointestinal angiectasia [Recovering/Resolving]
  - Cardiac failure [Fatal]
  - Pulmonary hypertension [Not Recovered/Not Resolved]

NARRATIVE: CASE EVENT DATE: 20190318
